FAERS Safety Report 25572493 (Version 1)
Quarter: 2025Q3

REPORT INFORMATION
  Report Type: Spontaneous
  Country: US (occurrence: US)
  Receive Date: 20250717
  Receipt Date: 20250717
  Transmission Date: 20251020
  Serious: Yes (Hospitalization, Other)
  Sender: BIOCON
  Company Number: US-BIOCON BIOLOGICS LIMITED-BBL2025003760

PATIENT

DRUGS (1)
  1. ADALIMUMAB [Suspect]
     Active Substance: ADALIMUMAB
     Indication: Rheumatoid arthritis
     Route: 065

REACTIONS (6)
  - Pleural effusion [Unknown]
  - Infarction [Unknown]
  - Acute respiratory distress syndrome [Unknown]
  - Acute kidney injury [Unknown]
  - Metabolic encephalopathy [Unknown]
  - Toxic shock syndrome [Unknown]
